FAERS Safety Report 6379165-0 (Version None)
Quarter: 2009Q3

REPORT INFORMATION
  Report Type: 
  Country: None (occurrence: None)
  Receive Date: 20090928
  Receipt Date: 20090826
  Transmission Date: 20100115
  Serious: No
  Sender: FDA-Public Use
  Company Number: US-BAYER-200931177NA

PATIENT
  Age: 31 Year
  Sex: Female
  Weight: 95 kg

DRUGS (3)
  1. ULTRAVIST 240 [Suspect]
     Indication: COMPUTERISED TOMOGRAM ABDOMEN
     Dosage: RIGHT HAND/WRIST, POWER INJECTOR
     Route: 042
     Dates: start: 20090826, end: 20090826
  2. PREDNISONE [Concomitant]
     Dosage: 50 MG X 3
     Route: 048
     Dates: start: 20090826, end: 20090826
  3. BENADRYL [Concomitant]
     Dosage: AS USED: 25 MG
     Route: 048
     Dates: start: 20090826, end: 20090826

REACTIONS (4)
  - DYSPNOEA [None]
  - PRURITUS [None]
  - RASH [None]
  - URTICARIA [None]
